FAERS Safety Report 7337379-7 (Version None)
Quarter: 2011Q1

REPORT INFORMATION
  Report Type: 
  Country: None (occurrence: None)
  Receive Date: 20110308
  Receipt Date: 20110308
  Transmission Date: 20110831
  Serious: Yes (Other)
  Sender: FDA-Public Use
  Company Number: None

PATIENT
  Age: 29 Year
  Sex: Female
  Weight: 58.9676 kg

DRUGS (1)
  1. TRIAD PREP PADS [Suspect]
     Indication: STERILISATION
     Dates: start: 20100901, end: 20110112

REACTIONS (3)
  - PRODUCT CONTAMINATION [None]
  - LYMPHADENOPATHY [None]
  - TRANSMISSION OF AN INFECTIOUS AGENT VIA A MEDICINAL PRODUCT [None]
